FAERS Safety Report 19349489 (Version 1)
Quarter: 2021Q2

REPORT INFORMATION
  Report Type: Spontaneous
  Country: US (occurrence: US)
  Receive Date: 20210531
  Receipt Date: 20210531
  Transmission Date: 20210717
  Serious: No
  Sender: FDA-Public Use
  Company Number: None

PATIENT
  Age: 62 Year
  Sex: Male
  Weight: 99 kg

DRUGS (4)
  1. ASPIRIN 81MG [Concomitant]
     Active Substance: ASPIRIN
  2. JUBLIA [Suspect]
     Active Substance: EFINACONAZOLE
     Indication: ONYCHOMYCOSIS
     Dosage: ?          QUANTITY:1 DROP(S);?
     Route: 061
     Dates: start: 20210205, end: 20210501
  3. BUPROPRION 50MG [Concomitant]
  4. ASTORVASTIN 20MG [Concomitant]

REACTIONS (2)
  - Guttate psoriasis [None]
  - Therapy cessation [None]

NARRATIVE: CASE EVENT DATE: 20210210
